FAERS Safety Report 10421306 (Version 2)
Quarter: 2014Q3

REPORT INFORMATION
  Report Type: Spontaneous
  Country: US (occurrence: US)
  Receive Date: 20140831
  Receipt Date: 20140831
  Transmission Date: 20150326
  Serious: Yes (Hospitalization, Other)
  Sender: FDA-Public Use
  Company Number: US-009507513-2010SP044540

PATIENT
  Sex: Female
  Weight: 81.65 kg

DRUGS (7)
  1. VITAMINS (UNSPECIFIED) [Concomitant]
     Active Substance: VITAMINS
     Indication: GENERAL PHYSICAL CONDITION
     Dates: start: 2003
  2. NUVARING [Suspect]
     Active Substance: ETHINYL ESTRADIOL\ETONOGESTREL
     Indication: POLYCYSTIC OVARIES
     Dosage: UNK
     Route: 067
     Dates: start: 20050608, end: 20080903
  3. ASCORBIC ACID. [Concomitant]
     Active Substance: ASCORBIC ACID
     Indication: GENERAL PHYSICAL CONDITION
     Dates: start: 2003
  4. SYNTHROID [Concomitant]
     Active Substance: LEVOTHYROXINE SODIUM
     Indication: HYPOTHYROIDISM
     Dates: start: 1999
  5. METFORMIN [Concomitant]
     Active Substance: METFORMIN HYDROCHLORIDE
     Indication: POLYCYSTIC OVARIES
     Dates: start: 1999
  6. TYLENOL [Concomitant]
     Active Substance: ACETAMINOPHEN
  7. ALBUTEROL. [Concomitant]
     Active Substance: ALBUTEROL
     Indication: ASTHMA
     Dates: start: 1980

REACTIONS (13)
  - Limb injury [Unknown]
  - Hypertension [Unknown]
  - Eustachian tube dysfunction [Unknown]
  - Panic attack [Unknown]
  - Anaemia [Unknown]
  - Pulmonary infarction [Unknown]
  - Insomnia [Not Recovered/Not Resolved]
  - Temporomandibular joint syndrome [Unknown]
  - Pulmonary embolism [Unknown]
  - Anxiety [Not Recovered/Not Resolved]
  - Benign breast neoplasm [Unknown]
  - Pneumonia [Unknown]
  - Hypokalaemia [Unknown]

NARRATIVE: CASE EVENT DATE: 2007
